FAERS Safety Report 9271332 (Version 4)
Quarter: 2013Q3

REPORT INFORMATION
  Report Type: Spontaneous
  Country: DE (occurrence: DE)
  Receive Date: 20130506
  Receipt Date: 20130917
  Transmission Date: 20140515
  Serious: Yes (Hospitalization, Other)
  Sender: FDA-Public Use
  Company Number: DE-ELI_LILLY_AND_COMPANY-DE201304007987

PATIENT
  Sex: Male

DRUGS (5)
  1. FORSTEO [Suspect]
     Indication: OSTEOPOROSIS
     Dosage: UNK
     Route: 058
     Dates: start: 20121101
  2. SALOFALK                           /00000301/ [Concomitant]
  3. BISOHEXAL [Concomitant]
  4. PREDNI M [Concomitant]
  5. CALCIUM D3                         /01483701/ [Concomitant]

REACTIONS (1)
  - Renal cell carcinoma stage I [Recovered/Resolved]
